FAERS Safety Report 24363769 (Version 2)
Quarter: 2024Q4

REPORT INFORMATION
  Report Type: Report from Study
  Country: US (occurrence: US)
  Receive Date: 20240925
  Receipt Date: 20241029
  Transmission Date: 20250115
  Serious: Yes (Hospitalization, Other)
  Sender: TAKEDA
  Company Number: US-TAKEDA-2024TUS094136

PATIENT
  Sex: Female

DRUGS (1)
  1. FRUQUINTINIB [Suspect]
     Active Substance: FRUQUINTINIB
     Indication: Rectal cancer
     Dosage: 5 MILLIGRAM
     Route: 048
     Dates: start: 20240905

REACTIONS (8)
  - Dehydration [Unknown]
  - Syncope [Unknown]
  - Haemoglobin decreased [Unknown]
  - Furuncle [Unknown]
  - Dry skin [Unknown]
  - Skin exfoliation [Unknown]
  - Gait inability [Unknown]
  - Diarrhoea [Unknown]
